FAERS Safety Report 5109001-1 (Version None)
Quarter: 2006Q3

REPORT INFORMATION
  Report Type: 
  Country: None (occurrence: None)
  Receive Date: 20060918
  Receipt Date: 20060904
  Transmission Date: 20061208
  Serious: Yes (Other)
  Sender: FDA-Public Use
  Company Number: 2006110643

PATIENT
  Age: 53 Year
  Sex: Male

DRUGS (4)
  1. EPIRUBICIN [Suspect]
     Indication: BLADDER CANCER
     Dosage: 50 MG, INTRAVENOUS
     Route: 042
     Dates: start: 20060816
  2. CISPLATIN [Suspect]
     Indication: BLADDER CANCER
     Dosage: INTRAVENOUS
     Route: 042
     Dates: start: 20060816
  3. METHOTREXATE [Suspect]
     Indication: BLADDER CANCER
     Dosage: INTRAVENOUS
     Route: 042
     Dates: start: 20060816
  4. VINBLASTINE SULFATE [Suspect]
     Indication: BLADDER CANCER
     Dosage: INTRAVENOUS
     Route: 042
     Dates: start: 20060816

REACTIONS (3)
  - BLOOD ALKALINE PHOSPHATASE INCREASED [None]
  - BLOOD LACTATE DEHYDROGENASE INCREASED [None]
  - GAMMA-GLUTAMYLTRANSFERASE INCREASED [None]
